FAERS Safety Report 8403366-0 (Version None)
Quarter: 2012Q2

REPORT INFORMATION
  Report Type: 
  Country: None (occurrence: None)
  Receive Date: 20120601
  Receipt Date: 20120531
  Transmission Date: 20120825
  Serious: No
  Sender: FDA-Public Use
  Company Number: US-PFIZER INC-2012131977

PATIENT
  Sex: Female
  Weight: 56.689 kg

DRUGS (4)
  1. LAMICTAL [Suspect]
     Indication: DEPRESSION
     Dosage: 2 PILLS IN THE MORNING DAILY
  2. XANAX [Suspect]
     Indication: TREMOR
     Dosage: 1 MG, UNK
  3. CHANTIX [Suspect]
     Dosage: 0.5 MG, DAILY
     Route: 048
     Dates: start: 20120501, end: 20120501
  4. CHANTIX [Suspect]
     Indication: SMOKING CESSATION THERAPY
     Dosage: 0.5 MG, DAILY
     Route: 048
     Dates: start: 20120101, end: 20120101

REACTIONS (5)
  - DRUG INEFFECTIVE [None]
  - TREMOR [None]
  - FATIGUE [None]
  - DEPRESSION [None]
  - NAUSEA [None]
